FAERS Safety Report 14025121 (Version 2)
Quarter: 2017Q4

REPORT INFORMATION
  Report Type: Spontaneous
  Country: EC (occurrence: EC)
  Receive Date: 20170929
  Receipt Date: 20171029
  Transmission Date: 20180321
  Serious: Yes (Life-Threatening, Other)
  Sender: FDA-Public Use
  Company Number: EC-BAXTER-2017BAX033829

PATIENT
  Sex: Female

DRUGS (5)
  1. REMIFENTANIL [Suspect]
     Active Substance: REMIFENTANIL
     Indication: ANAESTHESIA PROCEDURE
     Route: 065
     Dates: start: 20170920
  2. SEVOLURANO 250 ML LIQUIDO INHALABLE [Suspect]
     Active Substance: SEVOFLURANE
     Indication: ANAESTHESIA PROCEDURE
     Route: 055
     Dates: start: 20170920
  3. REMIFENTANIL [Suspect]
     Active Substance: REMIFENTANIL
     Dosage: DOSE INCREASED
     Route: 065
     Dates: start: 20170920
  4. PROVIVE [Suspect]
     Active Substance: PROPOFOL
     Indication: ANAESTHESIA PROCEDURE
     Route: 065
     Dates: start: 20170920
  5. PROVIVE [Suspect]
     Active Substance: PROPOFOL
     Dosage: DOSE INCREASED
     Route: 065
     Dates: start: 20170920

REACTIONS (2)
  - Drug ineffective [Unknown]
  - Haemorrhage [Recovered/Resolved]

NARRATIVE: CASE EVENT DATE: 20170920
